FAERS Safety Report 18040901 (Version 1)
Quarter: 2020Q3

REPORT INFORMATION
  Report Type: Spontaneous
  Country: FR (occurrence: FR)
  Receive Date: 20200717
  Receipt Date: 20200717
  Transmission Date: 20201103
  Serious: Yes (Hospitalization)
  Sender: FDA-Public Use
  Company Number: NVSC2020FR201031

PATIENT
  Age: 85 Year
  Sex: Male

DRUGS (3)
  1. CLOXACILLIN [Suspect]
     Active Substance: CLOXACILLIN
     Indication: ENDOCARDITIS
     Dosage: 3 G, Q8H
     Route: 042
     Dates: start: 20160219, end: 20160304
  2. GENTAMICINE [Suspect]
     Active Substance: GENTAMICIN
     Indication: ENDOCARDITIS
     Dosage: 3 MG/KG, Q72H
     Route: 042
     Dates: start: 20160219, end: 20160304
  3. FUROSEMIDE. [Suspect]
     Active Substance: FUROSEMIDE
     Indication: CARDIOMYOPATHY
     Dosage: 125 MG, QD
     Route: 048
     Dates: start: 20160223

REACTIONS (1)
  - Acute kidney injury [Recovered/Resolved]

NARRATIVE: CASE EVENT DATE: 20160227
